FAERS Safety Report 7840970-2 (Version None)
Quarter: 2011Q4

REPORT INFORMATION
  Report Type: 
  Country: None (occurrence: None)
  Receive Date: 20111021
  Receipt Date: 20111021
  Transmission Date: 20120403
  Serious: No
  Sender: FDA-Public Use
  Company Number: None

PATIENT
  Sex: Male
  Weight: 90.7194 kg

DRUGS (1)
  1. FLOMAX [Suspect]
     Indication: PROSTATOMEGALY
     Dosage: ONE CAPSULE DAILY DAILY 90 DAYS
     Dates: start: 20110630, end: 20110829

REACTIONS (7)
  - DYSPNOEA [None]
  - MUSCLE DISORDER [None]
  - ASTHENIA [None]
  - OEDEMA PERIPHERAL [None]
  - DIARRHOEA [None]
  - ACID BASE BALANCE ABNORMAL [None]
  - SKIN DISORDER [None]
